FAERS Safety Report 25691355 (Version 2)
Quarter: 2025Q3

REPORT INFORMATION
  Report Type: Report from Study
  Country: US (occurrence: US)
  Receive Date: 20250818
  Receipt Date: 20250910
  Transmission Date: 20251021
  Serious: Yes (Hospitalization, Other)
  Sender: TAKEDA
  Company Number: US-TAKEDA-2025TUS017932

PATIENT
  Age: 34 Year
  Sex: Female
  Weight: 229 kg

DRUGS (2)
  1. .ALPHA.1-PROTEINASE INHIBITOR HUMAN [Suspect]
     Active Substance: .ALPHA.1-PROTEINASE INHIBITOR HUMAN
     Indication: Alpha-1 antitrypsin deficiency
     Dosage: 60 MG/KG, 1/WEEK
     Dates: start: 20241001
  2. GLASSIA [Suspect]
     Active Substance: .ALPHA.1-PROTEINASE INHIBITOR HUMAN
     Indication: Alpha-1 antitrypsin deficiency
     Dosage: 60 MG/KG, 1/WEEK
     Dates: start: 20250630

REACTIONS (10)
  - Pneumonia [Unknown]
  - Cellulitis [Unknown]
  - Post-acute COVID-19 syndrome [Unknown]
  - Musculoskeletal chest pain [Unknown]
  - Pulmonary pain [Unknown]
  - Pleural effusion [Unknown]
  - Productive cough [Unknown]
  - Chest pain [Unknown]
  - Bronchitis [Not Recovered/Not Resolved]
  - Dyspnoea [Unknown]

NARRATIVE: CASE EVENT DATE: 20241001
